FAERS Safety Report 16879316 (Version 1)
Quarter: 2019Q4

REPORT INFORMATION
  Report Type: Other
  Country: CA (occurrence: CA)
  Receive Date: 20191003
  Receipt Date: 20191003
  Transmission Date: 20200122
  Serious: Yes (Life-Threatening, Hospitalization, Disabling)
  Sender: FDA-Public Use
  Company Number: CA-APOTEX-2019AP022644

PATIENT
  Age: 38 Year
  Sex: Male

DRUGS (1)
  1. FLUTICASONE. [Suspect]
     Active Substance: FLUTICASONE
     Indication: ALLERGY TO CHEMICALS
     Dosage: UNK
     Route: 045

REACTIONS (1)
  - Psychotic disorder [Recovered/Resolved]
